FAERS Safety Report 9268807 (Version 2)
Quarter: 2013Q2

REPORT INFORMATION
  Report Type: Spontaneous
  Country: BR (occurrence: BR)
  Receive Date: 20130502
  Receipt Date: 20130527
  Transmission Date: 20140414
  Serious: Yes (Other)
  Sender: FDA-Public Use
  Company Number: BR-AMGEN-BRASP2013030130

PATIENT
  Age: 64 Year
  Sex: Female
  Weight: 72 kg

DRUGS (3)
  1. ENBREL [Suspect]
     Indication: RHEUMATOID ARTHRITIS
     Dosage: 50 MG, ONCE WEEKLY
     Dates: start: 201111
  2. HYDROCHLOROTHIAZIDE [Concomitant]
     Indication: HYPERTENSION
     Dosage: UNK
  3. LOSARTAN [Concomitant]
     Indication: HYPERTENSION
     Dosage: UNK

REACTIONS (7)
  - Lower limb fracture [Recovering/Resolving]
  - Fall [Unknown]
  - Wrong technique in drug usage process [Recovered/Resolved]
  - Fracture [Recovering/Resolving]
  - Pain [Recovering/Resolving]
  - Inflammation [Recovering/Resolving]
  - Injection site pain [Recovering/Resolving]
